FAERS Safety Report 4400665-4 (Version None)
Quarter: 2004Q3

REPORT INFORMATION
  Report Type: 
  Country: None (occurrence: None)
  Receive Date: 20040714
  Receipt Date: 20040628
  Transmission Date: 20050211
  Serious: Yes (Hospitalization)
  Sender: FDA-Public Use
  Company Number: 6009428

PATIENT
  Age: 83 Year
  Sex: Female

DRUGS (6)
  1. GLUCOPHAGE [Suspect]
     Dosage: 3 DOSAGE FORMS (1 DOSAGE FORMS, 3 IN 1 D) ORAL
     Route: 048
  2. LEVOTHYROX 100 (TABLETS) (LEVOTHYROXINE SODIUM) [Suspect]
     Dosage: 1 DOSAGE FORMS (1 DOSAGE FORMS, 1 IN 1 D) ORAL
     Route: 048
  3. NAPROSYNE (500 MG, TABLETS) (NAPROXEN) [Suspect]
     Dosage: (1 D) ORAL
     Route: 048
     Dates: end: 20040210
  4. KARDEGIC (160 MG) (ACETYLSALICYLATE LYSINE) [Suspect]
     Dosage: 160 MG (160 MG, 1 IN 1 D) ORAL
     Route: 048
     Dates: end: 20040214
  5. APROVEL (TABLETS) (IRBESARTAN) [Suspect]
     Dosage: 1 DOSAGE FORMS (1 DOSAGE FORMS, 1 IN 1 D) ORAL
     Route: 048
  6. DAONIL (5 MILLIGRAM (S)/KILOGRAM, TABLETS) (GLIBENCLAMIDE) [Suspect]
     Dosage: 3 DOSAGE FORMS (1 DOSAGE FORMS, 3 IN 1 D)

REACTIONS (2)
  - ANAEMIA [None]
  - GASTROINTESTINAL HAEMORRHAGE [None]
